FAERS Safety Report 8283481-5 (Version None)
Quarter: 2012Q2

REPORT INFORMATION
  Report Type: 
  Country: None (occurrence: None)
  Receive Date: 20120413
  Receipt Date: 20120403
  Transmission Date: 20120825
  Serious: Yes (Hospitalization)
  Sender: FDA-Public Use
  Company Number: GB-JNJFOC-20120402247

PATIENT
  Sex: Male
  Weight: 84 kg

DRUGS (7)
  1. REMICADE [Suspect]
     Route: 042
     Dates: start: 20070104
  2. REMICADE [Suspect]
     Indication: PSORIATIC ARTHROPATHY
     Route: 042
     Dates: start: 20110801
  3. PREDNISOLONE [Concomitant]
  4. REMICADE [Suspect]
     Route: 042
     Dates: start: 20070104
  5. REMICADE [Suspect]
     Indication: PSORIASIS
     Route: 042
     Dates: start: 20110801
  6. STEROIDS NOS [Concomitant]
     Indication: PSORIATIC ARTHROPATHY
  7. METHOTREXATE [Concomitant]

REACTIONS (3)
  - LISTERIOSIS [None]
  - KNEE ARTHROPLASTY [None]
  - URINARY TRACT INFECTION [None]
